FAERS Safety Report 22151931 (Version 1)
Quarter: 2023Q1

REPORT INFORMATION
  Report Type: Spontaneous
  Country: US (occurrence: US)
  Receive Date: 20230329
  Receipt Date: 20230329
  Transmission Date: 20230417
  Serious: Yes (Hospitalization)
  Sender: FDA-Public Use
  Company Number: US-VANDA PHARMACEUTICALS, INC-2023ILOUS001906

PATIENT
  Age: 14 Year
  Sex: Female

DRUGS (2)
  1. FANAPT [Suspect]
     Active Substance: ILOPERIDONE
     Indication: Psychotic disorder
     Dosage: 6 MILLIGRAM, QD
     Route: 048
     Dates: start: 2023
  2. FANAPT [Suspect]
     Active Substance: ILOPERIDONE
     Dosage: 8 MILLIGRAM, QD
     Route: 048
     Dates: end: 202303

REACTIONS (6)
  - Drug-induced liver injury [Recovered/Resolved]
  - Gait disturbance [Unknown]
  - Fall [Unknown]
  - Psychotic disorder [Unknown]
  - Product administered to patient of inappropriate age [Unknown]
  - Off label use [Unknown]

NARRATIVE: CASE EVENT DATE: 20230301
